FAERS Safety Report 6734725-X (Version None)
Quarter: 2010Q2

REPORT INFORMATION
  Report Type: 
  Country: None (occurrence: None)
  Receive Date: 20100519
  Receipt Date: 20100519
  Transmission Date: 20101027
  Serious: Yes (Hospitalization)
  Sender: FDA-Public Use
  Company Number: None

PATIENT
  Age: 56 Year
  Weight: 85 kg

DRUGS (2)
  1. AMPYRA [Suspect]
     Indication: MULTIPLE SCLEROSIS
     Dosage: (DF) ORAL
     Route: 048
     Dates: start: 20060101, end: 20060101
  2. COPAXONE [Suspect]

REACTIONS (3)
  - CONVULSION [None]
  - FALL [None]
  - LOSS OF CONSCIOUSNESS [None]
